FAERS Safety Report 4953979-3 (Version None)
Quarter: 2006Q1

REPORT INFORMATION
  Report Type: 
  Country: None (occurrence: None)
  Receive Date: 20060323
  Receipt Date: 20060323
  Transmission Date: 20060701
  Serious: Yes (Hospitalization)
  Sender: FDA-Public Use
  Company Number: None

PATIENT
  Age: 50 Year
  Sex: Female
  Weight: 64 kg

DRUGS (5)
  1. ERLOTINIB [Suspect]
     Indication: LUNG NEOPLASM MALIGNANT
     Dosage: 150 MG
     Dates: start: 20060215, end: 20060310
  2. OXYCONTIN [Concomitant]
  3. OXYCODON [Concomitant]
  4. COLACE/SENOKOT [Concomitant]
  5. LORAZEPAM [Concomitant]

REACTIONS (1)
  - DISEASE PROGRESSION [None]
